FAERS Safety Report 10089023 (Version 2)
Quarter: 2014Q2

REPORT INFORMATION
  Report Type: Spontaneous
  Country: US (occurrence: US)
  Receive Date: 20140421
  Receipt Date: 20140515
  Transmission Date: 20141212
  Serious: No
  Sender: FDA-Public Use
  Company Number: US-009507513-1404USA010746

PATIENT
  Sex: Female

DRUGS (4)
  1. OXYTROL FOR WOMEN [Suspect]
     Indication: HYPERTONIC BLADDER
     Dosage: UNK, Q4D
     Route: 062
     Dates: start: 20140327, end: 201404
  2. OXYTROL FOR WOMEN [Suspect]
     Indication: NOCTURIA
  3. OXYTROL FOR WOMEN [Suspect]
     Indication: MICTURITION URGENCY
  4. OXYTROL FOR WOMEN [Suspect]
     Indication: POLLAKIURIA

REACTIONS (2)
  - Drug ineffective [Unknown]
  - Product packaging issue [Unknown]
